FAERS Safety Report 10437940 (Version 2)
Quarter: 2014Q3

REPORT INFORMATION
  Report Type: Spontaneous
  Country: US (occurrence: US)
  Receive Date: 20140908
  Receipt Date: 20140908
  Transmission Date: 20150326
  Serious: No
  Sender: FDA-Public Use
  Company Number: US-BRISTOL-MYERS SQUIBB COMPANY-19124460

PATIENT
  Age: 47 Year
  Sex: Male
  Weight: 65.76 kg

DRUGS (5)
  1. METAMUCIL [Concomitant]
     Active Substance: PLANTAGO SEED
     Indication: DECREASED APPETITE
  2. LAMOTRIGINE. [Concomitant]
     Active Substance: LAMOTRIGINE
  3. ABILIFY [Suspect]
     Active Substance: ARIPIPRAZOLE
     Indication: DEPRESSION
     Dosage: RESTARTED: ABILIFY 2.5MG DAILY
     Dates: end: 201212
  4. LITHIUM [Concomitant]
     Active Substance: LITHIUM CARBONATE
  5. ESCITALOPRAM [Concomitant]
     Active Substance: ESCITALOPRAM OXALATE

REACTIONS (2)
  - Weight increased [Unknown]
  - Wrong technique in drug usage process [Unknown]
